FAERS Safety Report 23308321 (Version 1)
Quarter: 2023Q4

REPORT INFORMATION
  Report Type: Spontaneous
  Country: US (occurrence: US)
  Receive Date: 20231218
  Receipt Date: 20231218
  Transmission Date: 20240109
  Serious: No
  Sender: FDA-Public Use
  Company Number: US-SA-SAC20231212000043

PATIENT
  Age: 43 Year
  Sex: Female

DRUGS (2)
  1. DUPIXENT [Suspect]
     Active Substance: DUPILUMAB
     Indication: Eczema
     Dosage: A LOADING DOSE OF 2 300MG PENS=600MG UNDER THE SKIN ONCE ON DAY 1
     Route: 058
     Dates: start: 202310, end: 202310
  2. DUPIXENT [Suspect]
     Active Substance: DUPILUMAB
     Dosage: MAINTENANCE DOSE OF 1 300MG PEN UNDER THE SKIN EVERY 14 DAYS
     Route: 058
     Dates: start: 2023

REACTIONS (2)
  - Insomnia [Unknown]
  - Eczema [Unknown]

NARRATIVE: CASE EVENT DATE: 20230101
